FAERS Safety Report 4952964-5 (Version None)
Quarter: 2006Q1

REPORT INFORMATION
  Report Type: 
  Country: None (occurrence: None)
  Receive Date: 20060324
  Receipt Date: 20060322
  Transmission Date: 20060701
  Serious: Yes (Death)
  Sender: FDA-Public Use
  Company Number: CH-BRISTOL-MYERS SQUIBB COMPANY-13323167

PATIENT
  Age: 57 Year
  Sex: Female

DRUGS (4)
  1. TAMOXIFEN CITRATE [Suspect]
     Indication: BREAST CANCER
     Route: 048
     Dates: start: 19990126, end: 19990126
  2. CYCLOPHOSPHAMIDE [Suspect]
     Indication: COLON CANCER
     Dates: start: 19990126, end: 19990622
  3. METHOTREXATE [Suspect]
     Indication: COLON CANCER
     Dates: start: 19990126, end: 19990622
  4. FLUOROURACIL [Suspect]
     Indication: COLON CANCER
     Dates: start: 19990126, end: 19990622

REACTIONS (2)
  - COLON CANCER [None]
  - METASTASES TO LIVER [None]
